FAERS Safety Report 5192505-3 (Version None)
Quarter: 2006Q4

REPORT INFORMATION
  Report Type: 
  Country: None (occurrence: None)
  Receive Date: 20061220
  Receipt Date: 20061115
  Transmission Date: 20070319
  Serious: Yes (Other)
  Sender: FDA-Public Use
  Company Number: 2006EU002939

PATIENT
  Age: 63 Year
  Sex: Female

DRUGS (3)
  1. VESICARE [Suspect]
     Indication: URINARY INCONTINENCE
     Dosage: 5 MG, UID/QD
     Dates: start: 20060627, end: 20060822
  2. TAMBOCOR [Concomitant]
  3. THYRAX (LEVOTHYROXINE) [Concomitant]

REACTIONS (2)
  - ECCHYMOSIS [None]
  - VISION BLURRED [None]
